FAERS Safety Report 9757711 (Version 2)
Quarter: 2013Q4

REPORT INFORMATION
  Report Type: Report from Study
  Country: DE (occurrence: DE)
  Receive Date: 20131216
  Receipt Date: 20131226
  Transmission Date: 20140711
  Serious: Yes (Hospitalization, Other)
  Sender: FDA-Public Use
  Company Number: DE-BRISTOL-MYERS SQUIBB COMPANY-19889187

PATIENT
  Age: 42 Year
  Sex: Female
  Weight: 120 kg

DRUGS (1)
  1. ORENCIA [Suspect]
     Indication: POLYARTHRITIS
     Dates: start: 20120116, end: 20130610

REACTIONS (2)
  - Urinary tract disorder [Recovered/Resolved]
  - Gastric haemorrhage [Unknown]
